FAERS Safety Report 4432733-5 (Version None)
Quarter: 2004Q3

REPORT INFORMATION
  Report Type: 
  Country: None (occurrence: None)
  Receive Date: 20040820
  Receipt Date: 20040812
  Transmission Date: 20050211
  Serious: Yes (Life-Threatening)
  Sender: FDA-Public Use
  Company Number: K200401222

PATIENT
  Age: 90 Year
  Sex: Female

DRUGS (9)
  1. ALTACE [Suspect]
     Dosage: 25 MG, Q AM, ORAL
     Route: 048
  2. FRUSEMIDE (FUROSEMIDE) 20MG [Suspect]
     Dosage: 20 MG, Q AM, ORAL
     Route: 048
  3. AUGMENTIN (CLAVULANATE POTASSIUM, AMOXICILLIN) 1.2G [Suspect]
     Indication: ARTHRITIS BACTERIAL
     Dosage: 1.2G, QD, INTRAVENOUS
     Route: 042
     Dates: start: 20040709, end: 20040709
  4. DIGOXIN (DIGOXIN) 125UG [Suspect]
     Dosage: 125 UG, QD,  ORAL
     Route: 048
  5. FELODIPINE [Suspect]
     Dosage: 5 MG, Q AM, ORAL
  6. SALBUTAMOL (SALBUTAMOL) [Concomitant]
  7. BUDESONIDE (BUDESONIDE) [Concomitant]
  8. ASPIRIN [Concomitant]
  9. LACTULOSE [Concomitant]

REACTIONS (4)
  - DYSPNOEA [None]
  - OXYGEN SATURATION DECREASED [None]
  - PALPITATIONS [None]
  - VOMITING [None]
